FAERS Safety Report 8562433-1 (Version None)
Quarter: 2012Q3

REPORT INFORMATION
  Report Type: 
  Country: None (occurrence: None)
  Receive Date: 20120802
  Receipt Date: 20120709
  Transmission Date: 20120928
  Serious: No
  Sender: FDA-Public Use
  Company Number: US-AMGEN-USASP2011007693

PATIENT
  Age: 49 Year
  Sex: Female
  Weight: 98.7 kg

DRUGS (2)
  1. ACID REDUCER [Concomitant]
     Dosage: UNK
  2. ENBREL [Suspect]
     Indication: ANKYLOSING SPONDYLITIS
     Dosage: 50 MG, QWK
     Dates: start: 20110128

REACTIONS (3)
  - GASTROOESOPHAGEAL REFLUX DISEASE [None]
  - FLANK PAIN [None]
  - DRUG INEFFECTIVE [None]
